FAERS Safety Report 19448718 (Version 1)
Quarter: 2021Q2

REPORT INFORMATION
  Report Type: Other
  Country: LB (occurrence: LB)
  Receive Date: 20210622
  Receipt Date: 20210622
  Transmission Date: 20210717
  Serious: Yes (Hospitalization)
  Sender: FDA-Public Use
  Company Number: LB-ROCHE-2851593

PATIENT
  Sex: Male

DRUGS (1)
  1. TECENTRIQ [Suspect]
     Active Substance: ATEZOLIZUMAB
     Indication: SMALL CELL LUNG CANCER
     Route: 041
     Dates: start: 20210506

REACTIONS (3)
  - Bronchitis [Recovering/Resolving]
  - Pyrexia [Recovered/Resolved]
  - Gait disturbance [Unknown]

NARRATIVE: CASE EVENT DATE: 20210611
